FAERS Safety Report 18310050 (Version 6)
Quarter: 2021Q1

REPORT INFORMATION
  Report Type: Spontaneous
  Country: US (occurrence: US)
  Receive Date: 20200924
  Receipt Date: 20210126
  Transmission Date: 20210419
  Serious: Yes (Other)
  Sender: FDA-Public Use
  Company Number: US-PFIZER INC-2020364046

PATIENT
  Age: 51 Year
  Sex: Female

DRUGS (1)
  1. IBRANCE [Suspect]
     Active Substance: PALBOCICLIB
     Indication: BREAST CANCER FEMALE
     Dosage: 100 MG, CYCLIC (FOR 21 DAYS ON, 7 DAYS OFF ON A 28 DAY CYCLE)

REACTIONS (10)
  - Bone cancer [Recovered/Resolved]
  - Abdominal pain upper [Recovered/Resolved]
  - Emotional disorder [Unknown]
  - Pain [Recovered/Resolved]
  - Oral mucosal blistering [Unknown]
  - Influenza [Recovered/Resolved]
  - Second primary malignancy [Recovered/Resolved]
  - Bone pain [Recovered/Resolved]
  - Product dose omission issue [Unknown]
  - Pyrexia [Unknown]
